FAERS Safety Report 7492569-8 (Version None)
Quarter: 2011Q2

REPORT INFORMATION
  Report Type: 
  Country: None (occurrence: None)
  Receive Date: 20110519
  Receipt Date: 20110420
  Transmission Date: 20111010
  Serious: No
  Sender: FDA-Public Use
  Company Number: US-BAYER-2011-035499

PATIENT
  Sex: Male
  Weight: 86 kg

DRUGS (7)
  1. CALCIUM CARBONATE [Concomitant]
  2. PROSCAR [Concomitant]
  3. ATENOLOL [Concomitant]
  4. TERAZOSIN HCL [Concomitant]
  5. CRESTOR [Concomitant]
  6. ALEVE (CAPLET) [Suspect]
     Indication: ANALGESIC THERAPY
     Dosage: 1 DF, BID
     Route: 048
     Dates: start: 20110412, end: 20110419
  7. ALLBEE [Concomitant]

REACTIONS (2)
  - ABDOMINAL DISCOMFORT [None]
  - DIZZINESS [None]
